FAERS Safety Report 11314039 (Version 2)
Quarter: 2015Q3

REPORT INFORMATION
  Report Type: Report from Study
  Country: US (occurrence: US)
  Receive Date: 20150727
  Receipt Date: 20150818
  Transmission Date: 20151125
  Serious: Yes (Hospitalization)
  Sender: FDA-Public Use
  Company Number: US-ABBVIE-15K-163-1431437-00

PATIENT
  Age: 76 Year
  Sex: Female

DRUGS (1)
  1. HUMIRA [Suspect]
     Active Substance: ADALIMUMAB
     Indication: COLITIS ULCERATIVE
     Route: 058
     Dates: start: 201501, end: 20150716

REACTIONS (11)
  - Blood pressure abnormal [Unknown]
  - Eye pain [Unknown]
  - Malaise [Recovered/Resolved]
  - Malaise [Unknown]
  - Visual impairment [Recovered/Resolved]
  - Drug intolerance [Not Recovered/Not Resolved]
  - Oedema peripheral [Not Recovered/Not Resolved]
  - Vomiting [Recovered/Resolved]
  - Headache [Recovered/Resolved]
  - Headache [Recovered/Resolved]
  - Chest pain [Unknown]

NARRATIVE: CASE EVENT DATE: 2015
